FAERS Safety Report 10085483 (Version 1)
Quarter: 2014Q2

REPORT INFORMATION
  Report Type: Spontaneous
  Country: US (occurrence: US)
  Receive Date: 20140418
  Receipt Date: 20140418
  Transmission Date: 20141212
  Serious: No
  Sender: FDA-Public Use
  Company Number: US-BIOGENIDEC-2014BI035359

PATIENT
  Sex: Female

DRUGS (1)
  1. TYSABRI [Suspect]
     Indication: MULTIPLE SCLEROSIS
     Route: 042
     Dates: start: 20041231, end: 20050119

REACTIONS (3)
  - Multiple allergies [Not Recovered/Not Resolved]
  - Memory impairment [Not Recovered/Not Resolved]
  - Nasopharyngitis [Not Recovered/Not Resolved]
